FAERS Safety Report 18763828 (Version 1)
Quarter: 2021Q1

REPORT INFORMATION
  Report Type: Other
  Country: CA (occurrence: CA)
  Receive Date: 20210120
  Receipt Date: 20210120
  Transmission Date: 20210419
  Serious: Yes (Hospitalization, Other)
  Sender: FDA-Public Use
  Company Number: CA-ACCORD-214591

PATIENT
  Age: 58 Year
  Sex: Female

DRUGS (13)
  1. FORANE [Suspect]
     Active Substance: ISOFLURANE
     Indication: SEIZURE
     Dosage: LIQUID INHALATION
     Route: 055
  2. METHYLPREDNISOLONE. [Suspect]
     Active Substance: METHYLPREDNISOLONE
     Indication: STATUS EPILEPTICUS
     Route: 042
  3. PHENYTOIN. [Suspect]
     Active Substance: PHENYTOIN
     Indication: STATUS EPILEPTICUS
  4. PROPOFOL MYLAN [Suspect]
     Active Substance: PROPOFOL
     Indication: STATUS EPILEPTICUS
     Dosage: 2 EVERY 1 DAYS
  5. KEPPRA [Suspect]
     Active Substance: LEVETIRACETAM
     Indication: STATUS EPILEPTICUS
  6. PIPERACILLIN SODIUM/TAZOBACTAM SODIUM [Concomitant]
     Active Substance: PIPERACILLIN SODIUM\TAZOBACTAM SODIUM
     Indication: PRODUCT USED FOR UNKNOWN INDICATION
  7. PHENOBARBITAL. [Suspect]
     Active Substance: PHENOBARBITAL
     Indication: STATUS EPILEPTICUS
     Dosage: 2 EVERY 1 DAYS
  8. VALPROIC ACID. [Suspect]
     Active Substance: VALPROIC ACID
     Indication: SEIZURE
  9. LEVETIRACETAM. [Suspect]
     Active Substance: LEVETIRACETAM
     Indication: PRODUCT USED FOR UNKNOWN INDICATION
  10. ISOFLURANE. [Suspect]
     Active Substance: ISOFLURANE
     Indication: STATUS EPILEPTICUS
     Route: 055
  11. KETAMINE [Suspect]
     Active Substance: KETAMINE
     Indication: STATUS EPILEPTICUS
  12. MIDAZOLAM. [Suspect]
     Active Substance: MIDAZOLAM
     Indication: STATUS EPILEPTICUS
  13. TEGRETOL [Concomitant]
     Active Substance: CARBAMAZEPINE
     Indication: PRODUCT USED FOR UNKNOWN INDICATION

REACTIONS (17)
  - Maternal exposure during pregnancy [Unknown]
  - Systemic inflammatory response syndrome [Recovered/Resolved]
  - Vomiting [Recovered/Resolved]
  - Left ventricular hypertrophy [Recovered/Resolved]
  - Hypotension [Recovered/Resolved]
  - Intestinal ischaemia [Recovered/Resolved]
  - Necrosis ischaemic [Recovered/Resolved]
  - Abscess [Recovered/Resolved]
  - Intestinal infarction [Recovered/Resolved]
  - Intra-abdominal pressure increased [Recovered/Resolved]
  - Pneumatosis [Recovered/Resolved]
  - Cardiomegaly [Recovered/Resolved]
  - Intestinal perforation [Recovered/Resolved]
  - Abdominal distension [Recovered/Resolved]
  - Carbohydrate antigen 125 increased [Recovered/Resolved]
  - Large intestine perforation [Recovered/Resolved]
  - Ultrasound ovary abnormal [Recovered/Resolved]
